FAERS Safety Report 14235174 (Version 1)
Quarter: 2017Q4

REPORT INFORMATION
  Report Type: Spontaneous
  Country: US (occurrence: US)
  Receive Date: 20171129
  Receipt Date: 20171129
  Transmission Date: 20180321
  Serious: No
  Sender: FDA-Public Use
  Company Number: US-LEADIANT BIOSCIENCES INC-2017STPI000111

PATIENT
  Sex: Male

DRUGS (12)
  1. PROCHLORPERAZINE. [Concomitant]
     Active Substance: PROCHLORPERAZINE
  2. MATULANE [Suspect]
     Active Substance: PROCARBAZINE HYDROCHLORIDE
     Indication: NON-HODGKIN^S LYMPHOMA
     Dosage: 200 MG QD FOR 7 DAYS
     Route: 048
     Dates: start: 20170202
  3. ONDANSETRON [Concomitant]
     Active Substance: ONDANSETRON
  4. GLIPIZIDE. [Concomitant]
     Active Substance: GLIPIZIDE
  5. LORAZEPAM. [Concomitant]
     Active Substance: LORAZEPAM
  6. SUCRALFATE. [Concomitant]
     Active Substance: SUCRALFATE
  7. TRUVADA [Concomitant]
     Active Substance: EMTRICITABINE\TENOFOVIR DISOPROXIL FUMARATE
  8. DAPSONE. [Concomitant]
     Active Substance: DAPSONE
  9. AZITHROMYCIN ANHYDROUS. [Concomitant]
     Active Substance: AZITHROMYCIN ANHYDROUS
  10. SODIUM CHLORIDE. [Concomitant]
     Active Substance: SODIUM CHLORIDE
  11. SAMSCA [Concomitant]
     Active Substance: TOLVAPTAN
  12. TIVICAY [Concomitant]
     Active Substance: DOLUTEGRAVIR SODIUM

REACTIONS (1)
  - Nausea [Not Recovered/Not Resolved]
